FAERS Safety Report 17064617 (Version 4)
Quarter: 2019Q4

REPORT INFORMATION
  Report Type: Spontaneous
  Country: US (occurrence: US)
  Receive Date: 20191122
  Receipt Date: 20191206
  Transmission Date: 20200122
  Serious: Yes (Other)
  Sender: FDA-Public Use
  Company Number: US-PFIZER INC-2019502789

PATIENT
  Age: 76 Year
  Sex: Female
  Weight: 81.65 kg

DRUGS (1)
  1. DOFETILIDE. [Suspect]
     Active Substance: DOFETILIDE
     Indication: ATRIAL FIBRILLATION
     Dosage: 500 UG, 2X/DAY ONE IN THE MORNING AND ONE AT NIGHT

REACTIONS (3)
  - Atrial fibrillation [Unknown]
  - Hypertension [Unknown]
  - Heart rate increased [Unknown]

NARRATIVE: CASE EVENT DATE: 2017
